FAERS Safety Report 8970440 (Version 1)
Quarter: 2012Q4

REPORT INFORMATION
  Report Type: 
  Country: US (occurrence: US)
  Receive Date: 20121218
  Receipt Date: 20121218
  Transmission Date: 20130627
  Serious: No
  Sender: FDA-Public Use
  Company Number: US-BRISTOL-MYERS SQUIBB COMPANY-16499899

PATIENT
  Age: 16 Year
  Sex: Male

DRUGS (3)
  1. ABILIFY [Suspect]
  2. CITALOPRAM [Suspect]
  3. KLONOPIN [Suspect]

REACTIONS (2)
  - Nervousness [Unknown]
  - Fear [Unknown]
